FAERS Safety Report 8432494-9 (Version None)
Quarter: 2012Q2

REPORT INFORMATION
  Report Type: 
  Country: None (occurrence: None)
  Receive Date: 20120613
  Receipt Date: 20120605
  Transmission Date: 20120825
  Serious: Yes (Hospitalization, Other)
  Sender: FDA-Public Use
  Company Number: PHHY2012FR041961

PATIENT
  Sex: Male

DRUGS (8)
  1. CRESTOR [Concomitant]
     Dosage: 20 MG, QD
     Dates: start: 20120207
  2. MIOREL [Concomitant]
     Dosage: 2 DF, BID
     Dates: start: 20120207, end: 20120213
  3. PANTOPRAZOLE SODIUM [Concomitant]
     Dates: start: 20120207
  4. KETOPROFEN [Suspect]
     Dosage: 100 MG, BID
     Route: 030
     Dates: start: 20120208, end: 20120222
  5. ACETAMINOPHEN [Concomitant]
     Dates: start: 20120207, end: 20120213
  6. MORPHINE SULFATE [Concomitant]
     Dates: start: 20120214
  7. VOLTAREN [Suspect]
     Indication: SPINAL PAIN
     Dosage: 75 MG, BID
     Route: 048
     Dates: start: 20120207, end: 20120208
  8. POLYETHYLENE GLYCOL [Concomitant]
     Dates: start: 20120207

REACTIONS (20)
  - INTERVERTEBRAL DISC DEGENERATION [None]
  - INTERVERTEBRAL DISC PROTRUSION [None]
  - PLEURAL EFFUSION [None]
  - WEIGHT DECREASED [None]
  - BONE ABSCESS [None]
  - EXTENSOR PLANTAR RESPONSE [None]
  - THROMBOCYTOSIS [None]
  - DIAPHRAGMATIC DISORDER [None]
  - BREATH SOUNDS ABNORMAL [None]
  - SPONDYLITIS [None]
  - BACK PAIN [None]
  - LEUKOCYTOSIS [None]
  - STAPHYLOCOCCUS TEST POSITIVE [None]
  - JOINT CONTRACTURE [None]
  - BONE MARROW OEDEMA [None]
  - INFLAMMATION [None]
  - CHEST PAIN [None]
  - NODULE [None]
  - NORMOCHROMIC NORMOCYTIC ANAEMIA [None]
  - CHOLESTASIS [None]
